FAERS Safety Report 20842207 (Version 2)
Quarter: 2022Q3

REPORT INFORMATION
  Report Type: Spontaneous
  Country: JP (occurrence: JP)
  Receive Date: 20220518
  Receipt Date: 20220708
  Transmission Date: 20221027
  Serious: Yes (Hospitalization)
  Sender: FDA-Public Use
  Company Number: JP-GEHPL-2022JSU003145AA

PATIENT
  Age: 7 Decade
  Sex: Male

DRUGS (3)
  1. OMNIPAQUE [Suspect]
     Active Substance: IOHEXOL
     Indication: Percutaneous coronary intervention
     Dosage: 100 ML, SINGLE
     Route: 065
     Dates: start: 20141118, end: 20141118
  2. OMNIPAQUE [Suspect]
     Active Substance: IOHEXOL
     Indication: Vascular stent occlusion
  3. HEPARIN [Concomitant]
     Active Substance: HEPARIN SODIUM
     Indication: Coagulation time

REACTIONS (5)
  - Acute coronary syndrome [Recovered/Resolved]
  - Kounis syndrome [Recovered/Resolved]
  - Shock [Recovered/Resolved]
  - Anaphylactic reaction [Recovered/Resolved]
  - Contrast media allergy [Recovered/Resolved]

NARRATIVE: CASE EVENT DATE: 20141118
